FAERS Safety Report 7720926-0 (Version None)
Quarter: 2011Q3

REPORT INFORMATION
  Report Type: 
  Country: None (occurrence: None)
  Receive Date: 20110831
  Receipt Date: 20110818
  Transmission Date: 20111222
  Serious: Yes (Hospitalization)
  Sender: FDA-Public Use
  Company Number: JP-SANOFI-AVENTIS-2010SA073842

PATIENT
  Age: 63 Year
  Sex: Male

DRUGS (5)
  1. EPINEPHRINE [Concomitant]
     Dates: start: 20100807, end: 20100807
  2. XELODA [Suspect]
     Indication: RECTAL CANCER
     Route: 048
     Dates: start: 20100331, end: 20100707
  3. AVASTIN [Suspect]
     Indication: RECTAL CANCER
     Route: 041
     Dates: start: 20100512, end: 20100623
  4. OXALIPLATIN [Suspect]
     Indication: RECTAL CANCER
     Route: 041
     Dates: start: 20100331, end: 20100623
  5. THROMBIN LOCAL SOLUTION [Concomitant]
     Dates: start: 20100807, end: 20100807

REACTIONS (4)
  - GASTRIC ULCER HAEMORRHAGE [None]
  - NEUROPATHY PERIPHERAL [None]
  - HYPOAESTHESIA [None]
  - DEHYDRATION [None]
